FAERS Safety Report 8530988-9 (Version None)
Quarter: 2012Q3

REPORT INFORMATION
  Report Type: 
  Country: None (occurrence: None)
  Receive Date: 20120711
  Receipt Date: 20120627
  Transmission Date: 20120928
  Serious: Yes (Other)
  Sender: FDA-Public Use
  Company Number: ENTC2012-0293

PATIENT
  Age: 83 Year
  Sex: Male

DRUGS (3)
  1. AMANTADINE HCL [Concomitant]
  2. STALEVO 100 [Suspect]
     Indication: PARKINSON'S DISEASE
     Dosage: 250 MG DAILY AND 150 MG 5 TIMES DAILY
  3. PRAMIPEXOLE DIHYDROCHLORIDE [Concomitant]

REACTIONS (3)
  - OEDEMA PERIPHERAL [None]
  - FATIGUE [None]
  - PANCYTOPENIA [None]
